FAERS Safety Report 19485897 (Version 2)
Quarter: 2021Q3

REPORT INFORMATION
  Report Type: Spontaneous
  Country: DE (occurrence: DE)
  Receive Date: 20210702
  Receipt Date: 20210726
  Transmission Date: 20211014
  Serious: Yes (Hospitalization, Other)
  Sender: FDA-Public Use
  Company Number: DE-PFIZER INC-2021745506

PATIENT
  Age: 65 Year
  Sex: Female
  Weight: 87 kg

DRUGS (5)
  1. DOCETAXEL. [Suspect]
     Active Substance: DOCETAXEL
     Indication: SARCOMA METASTATIC
     Dosage: UNK UNK, CYCLIC
     Dates: start: 2019, end: 201909
  2. TAMOXIFEN [Concomitant]
     Active Substance: TAMOXIFEN
     Indication: BREAST CANCER
     Dosage: UNK
     Dates: start: 201809
  3. GEMCITABINE HYDROCHLORIDE. [Suspect]
     Active Substance: GEMCITABINE HYDROCHLORIDE
     Dosage: UNK UNK, CYCLIC (CUMULATIVE DOSAGE? 2025 MG/M2)
     Dates: start: 201909, end: 201910
  4. DOCETAXEL. [Suspect]
     Active Substance: DOCETAXEL
     Dosage: DOSE REDUCED BY 25%
     Dates: start: 201909, end: 201910
  5. GEMCITABINE HYDROCHLORIDE. [Suspect]
     Active Substance: GEMCITABINE HYDROCHLORIDE
     Indication: SARCOMA METASTATIC
     Dosage: UNK UNK, CYCLIC (CUMULATIVE DOSAGE? 1800 MG/M2)
     Dates: start: 2019, end: 201909

REACTIONS (5)
  - Neutropenia [Not Recovered/Not Resolved]
  - Anaemia [Not Recovered/Not Resolved]
  - Haematotoxicity [Not Recovered/Not Resolved]
  - Thrombotic microangiopathy [Recovering/Resolving]
  - Thrombocytopenia [Not Recovered/Not Resolved]

NARRATIVE: CASE EVENT DATE: 201909
